FAERS Safety Report 5803717-7 (Version None)
Quarter: 2008Q3

REPORT INFORMATION
  Report Type: 
  Country: None (occurrence: None)
  Receive Date: 20080707
  Receipt Date: 20080701
  Transmission Date: 20090109
  Serious: Yes (Hospitalization)
  Sender: FDA-Public Use
  Company Number: ADR1422008

PATIENT
  Age: 77 Year
  Sex: Female

DRUGS (4)
  1. RISPERIDONE [Suspect]
     Indication: DEPRESSIVE DELUSION
     Dosage: 2 MG PER DAY
  2. CITALOPRAM HYDROBROMIDE [Suspect]
     Dosage: 20 MG PER DAY
  3. RAMIPRIL [Concomitant]
  4. NIFEDIPINE [Concomitant]

REACTIONS (3)
  - DRUG INTERACTION [None]
  - SINUS BRADYCARDIA [None]
  - TORSADE DE POINTES [None]
